FAERS Safety Report 14309249 (Version 2)
Quarter: 2017Q4

REPORT INFORMATION
  Report Type: Report from Study
  Country: MY (occurrence: MY)
  Receive Date: 20171220
  Receipt Date: 20171221
  Transmission Date: 20180321
  Serious: Yes (Death, Hospitalization, Other)
  Sender: FDA-Public Use
  Company Number: MY-B.I. PHARMACEUTICALS,INC./RIDGEFIELD-2016-BI-59768MD

PATIENT
  Age: 75 Year
  Sex: Male

DRUGS (2)
  1. BI 655075 [Suspect]
     Active Substance: IDARUCIZUMAB
     Indication: PROCOAGULANT THERAPY
     Dosage: DOSE -50MG/ML
     Route: 042
     Dates: start: 20160902, end: 20160902
  2. PRADAXA [Concomitant]
     Active Substance: DABIGATRAN ETEXILATE MESYLATE
     Indication: PRODUCT USED FOR UNKNOWN INDICATION
     Route: 065

REACTIONS (4)
  - Skull fracture [Unknown]
  - Femur fracture [Unknown]
  - Brain death [Fatal]
  - Subdural haematoma [Recovered/Resolved with Sequelae]

NARRATIVE: CASE EVENT DATE: 20160902
